FAERS Safety Report 6519120-0 (Version None)
Quarter: 2009Q4

REPORT INFORMATION
  Report Type: 
  Country: None (occurrence: None)
  Receive Date: 20091228
  Receipt Date: 20091217
  Transmission Date: 20100525
  Serious: Yes (Hospitalization)
  Sender: FDA-Public Use
  Company Number: US-BAXTER-2009BH016128

PATIENT
  Age: 32 Year
  Sex: Male
  Weight: 82 kg

DRUGS (3)
  1. IMMUNE GLOBULIN NOS [Suspect]
     Indication: DRUG LEVEL
     Route: 058
     Dates: start: 20091007, end: 20091007
  2. IMMUNE GLOBULIN NOS [Suspect]
     Route: 058
     Dates: start: 20090923, end: 20090923
  3. IMMUNE GLOBULIN NOS [Suspect]
     Route: 058
     Dates: start: 20090930, end: 20090930

REACTIONS (1)
  - HAEMOLYTIC ANAEMIA [None]
